FAERS Safety Report 11907037 (Version 2)
Quarter: 2016Q2

REPORT INFORMATION
  Report Type: Spontaneous
  Country: JP (occurrence: JP)
  Receive Date: 20160111
  Receipt Date: 20160412
  Transmission Date: 20160815
  Serious: Yes (Death)
  Sender: FDA-Public Use
  Company Number: JP-TEVA-624172ISR

PATIENT
  Age: 75 Year
  Sex: Female
  Weight: 53 kg

DRUGS (4)
  1. E-FEN BUCCAL [Suspect]
     Active Substance: FENTANYL CITRATE
     Dosage: 100 MILLIGRAM DAILY;
     Route: 002
     Dates: start: 20150918, end: 20150921
  2. FENTOS [Concomitant]
     Active Substance: FENTANYL
     Indication: CANCER PAIN
     Dosage: 4 MILLIGRAM DAILY;
     Route: 065
     Dates: start: 20150910, end: 20150921
  3. VERAPAMIL HCL [Concomitant]
     Active Substance: VERAPAMIL HYDROCHLORIDE
     Indication: BREAKTHROUGH PAIN
     Route: 065
     Dates: start: 20150920, end: 20150920
  4. E-FEN BUCCAL [Suspect]
     Active Substance: FENTANYL CITRATE
     Indication: BREAKTHROUGH PAIN
     Dosage: DAILY DOSE 0-300 MICROGRAM
     Route: 002
     Dates: start: 20150910, end: 20150917

REACTIONS (1)
  - Gastric cancer [Fatal]

NARRATIVE: CASE EVENT DATE: 20150921
